FAERS Safety Report 6303211-3 (Version None)
Quarter: 2009Q3

REPORT INFORMATION
  Report Type: 
  Country: None (occurrence: None)
  Receive Date: 20090810
  Receipt Date: 20090114
  Transmission Date: 20100115
  Serious: No
  Sender: FDA-Public Use
  Company Number: A0763597A

PATIENT
  Age: 37 Year
  Sex: Male

DRUGS (3)
  1. PAROXETINE HCL [Suspect]
     Dosage: 40MG PER DAY
     Route: 048
     Dates: start: 20080101
  2. SEROQUEL [Concomitant]
  3. CLONOPIN [Concomitant]

REACTIONS (1)
  - DRUG INEFFECTIVE [None]
